FAERS Safety Report 25979559 (Version 2)
Quarter: 2025Q4

REPORT INFORMATION
  Report Type: Report from Study
  Country: US (occurrence: US)
  Receive Date: 20251030
  Receipt Date: 20251118
  Transmission Date: 20260118
  Serious: Yes (Hospitalization, Other)
  Sender: ABBVIE
  Company Number: US-ABBVIE-6518613

PATIENT
  Age: 31 Year
  Sex: Female

DRUGS (2)
  1. RINVOQ [Suspect]
     Active Substance: UPADACITINIB
     Indication: Product used for unknown indication
     Route: 048
     Dates: start: 20250609
  2. IRON [Suspect]
     Active Substance: IRON
     Indication: Haemoglobin abnormal
     Route: 065

REACTIONS (9)
  - Haemoglobin abnormal [Recovering/Resolving]
  - Surgery [Recovering/Resolving]
  - Haematochezia [Recovering/Resolving]
  - Skin discolouration [Unknown]
  - Peripheral swelling [Recovered/Resolved]
  - Condition aggravated [Recovering/Resolving]
  - Frequent bowel movements [Recovering/Resolving]
  - Haemorrhoids [Not Recovered/Not Resolved]
  - Drug hypersensitivity [Unknown]

NARRATIVE: CASE EVENT DATE: 20250101
